FAERS Safety Report 10463387 (Version 1)
Quarter: 2014Q3

REPORT INFORMATION
  Report Type: Spontaneous
  Country: US (occurrence: None)
  Receive Date: 20140918
  Receipt Date: 20140918
  Transmission Date: 20150326
  Serious: Yes (Death)
  Sender: FDA-Public Use
  Company Number: None

PATIENT
  Age: 87 Year
  Sex: Male

DRUGS (1)
  1. SPRYCEL [Suspect]
     Active Substance: DASATINIB
     Indication: ILL-DEFINED DISORDER
     Route: 048
     Dates: start: 20120327, end: 20140819

REACTIONS (3)
  - Embolic stroke [None]
  - Acute respiratory failure [None]
  - Cardiac disorder [None]

NARRATIVE: CASE EVENT DATE: 20140819
